FAERS Safety Report 4415341-1 (Version None)
Quarter: 2004Q3

REPORT INFORMATION
  Report Type: 
  Country: None (occurrence: None)
  Receive Date: 20040730
  Receipt Date: 20040722
  Transmission Date: 20050211
  Serious: Yes (Hospitalization)
  Sender: FDA-Public Use
  Company Number: 2001070033US

PATIENT
  Sex: Female

DRUGS (6)
  1. XANAX [Suspect]
     Indication: ANXIETY
     Dosage: SEE IMAGE ORAL
     Route: 048
     Dates: start: 19850101
  2. XANAX [Suspect]
     Indication: ANXIETY
     Dosage: SEE IMAGE ORAL
     Route: 048
     Dates: start: 19870101
  3. XANAX [Suspect]
     Indication: ANXIETY
     Dosage: SEE IMAGE ORAL
     Route: 048
     Dates: start: 19910101
  4. ESTROGEN NOS (ESTROGEN NOS) [Concomitant]
  5. SERZONE [Concomitant]
  6. PROZAC [Concomitant]

REACTIONS (23)
  - ABDOMINAL DISTENSION [None]
  - ANOREXIA [None]
  - ANXIETY DISORDER [None]
  - DEPRESSION [None]
  - DIFFICULTY IN WALKING [None]
  - DIZZINESS [None]
  - DRUG DEPENDENCE [None]
  - DRUG EFFECT DECREASED [None]
  - DRUG TOLERANCE [None]
  - DRUG WITHDRAWAL SYNDROME [None]
  - DYSPNOEA [None]
  - FEELING ABNORMAL [None]
  - HYPERVENTILATION [None]
  - IMPAIRED DRIVING ABILITY [None]
  - INSOMNIA [None]
  - MUSCLE CRAMP [None]
  - NAUSEA [None]
  - NERVOUSNESS [None]
  - PANIC ATTACK [None]
  - SENSATION OF HEAVINESS [None]
  - TENSION HEADACHE [None]
  - VISION BLURRED [None]
  - WEIGHT DECREASED [None]
